FAERS Safety Report 10634807 (Version 3)
Quarter: 2015Q1

REPORT INFORMATION
  Report Type: Spontaneous
  Country: JP (occurrence: JP)
  Receive Date: 20141205
  Receipt Date: 20150211
  Transmission Date: 20150720
  Serious: Yes (Hospitalization)
  Sender: FDA-Public Use
  Company Number: JP-PFIZER INC-2014331050

PATIENT
  Age: 73 Year
  Sex: Male
  Weight: 43.4 kg

DRUGS (4)
  1. RIFADIN [Suspect]
     Active Substance: RIFAMPIN
     Indication: MYCOBACTERIAL INFECTION
     Dosage: 450 MG, 1X/DAY
     Route: 048
     Dates: start: 20140801, end: 20141112
  2. VFEND [Suspect]
     Active Substance: VORICONAZOLE
     Dosage: 170 MG, 2X/DAY
     Route: 041
     Dates: start: 20141114, end: 20141125
  3. VFEND [Suspect]
     Active Substance: VORICONAZOLE
     Indication: BRONCHOPULMONARY ASPERGILLOSIS
     Dosage: 250 MG, 2X/DAY
     Route: 041
     Dates: start: 20141113, end: 20141113
  4. ITRIZOLE [Suspect]
     Active Substance: ITRACONAZOLE
     Indication: BRONCHOPULMONARY ASPERGILLOSIS
     Dosage: 50 MG, 2X/DAY
     Route: 048
     Dates: start: 20140812, end: 20141112

REACTIONS (2)
  - Liver function test abnormal [Recovered/Resolved]
  - Computerised tomogram thorax abnormal [Recovering/Resolving]

NARRATIVE: CASE EVENT DATE: 20141125
